FAERS Safety Report 8410143-3 (Version None)
Quarter: 2012Q2

REPORT INFORMATION
  Report Type: 
  Country: None (occurrence: None)
  Receive Date: 20120605
  Receipt Date: 20120529
  Transmission Date: 20120825
  Serious: Yes (Hospitalization, Other)
  Sender: FDA-Public Use
  Company Number: PHHY2012MX046987

PATIENT
  Sex: Female

DRUGS (4)
  1. DILENA [Concomitant]
     Dosage: 1 DF, UNK
  2. FOSAMAX [Concomitant]
     Indication: OSTEOPOROSIS
     Dosage: 1 DF, UNK
     Dates: start: 20100401
  3. EVISTA [Concomitant]
     Dosage: 1 DF, UNK
  4. ZOLEDRONOC ACID [Suspect]
     Indication: OSTEOPOROSIS
     Dosage: 5 MG/100 ML, YEARLY
     Route: 042
     Dates: start: 20090317

REACTIONS (1)
  - SPINAL DISORDER [None]
